FAERS Safety Report 12963989 (Version 2)
Quarter: 2016Q4

REPORT INFORMATION
  Report Type: Spontaneous
  Country: GR (occurrence: GR)
  Receive Date: 20161122
  Receipt Date: 20161216
  Transmission Date: 20170207
  Serious: Yes (Other)
  Sender: FDA-Public Use
  Company Number: PHHY2016GR157508

PATIENT
  Age: 44 Year
  Sex: Male

DRUGS (1)
  1. TASIGNA [Suspect]
     Active Substance: NILOTINIB
     Indication: CHRONIC MYELOID LEUKAEMIA
     Dosage: 150 MG, UNK
     Route: 065

REACTIONS (3)
  - Hyperlipidaemia [Unknown]
  - Carotid artery stenosis [Unknown]
  - Peripheral arterial occlusive disease [Unknown]
